FAERS Safety Report 5339946-9 (Version None)
Quarter: 2007Q2

REPORT INFORMATION
  Report Type: 
  Country: None (occurrence: None)
  Receive Date: 20070529
  Receipt Date: 20070516
  Transmission Date: 20071010
  Serious: Yes (Hospitalization)
  Sender: FDA-Public Use
  Company Number: B0470011A

PATIENT
  Age: 36 Year
  Sex: Male

DRUGS (1)
  1. LITHIUM SALT (FORMULATION UNKNOWN) (GENERIC) (LITHIUM SALT) [Suspect]
     Indication: BIPOLAR DISORDER

REACTIONS (4)
  - BRUGADA SYNDROME [None]
  - BUNDLE BRANCH BLOCK RIGHT [None]
  - DRUG INTERACTION [None]
  - SYNCOPE [None]
